FAERS Safety Report 8913258 (Version 1)
Quarter: 2012Q4

REPORT INFORMATION
  Report Type: Spontaneous
  Country: US (occurrence: None)
  Receive Date: 20121114
  Receipt Date: 20121114
  Transmission Date: 20130627
  Serious: Yes (Disabling, Other)
  Sender: FDA-Public Use
  Company Number: ACO_32793_2012

PATIENT
  Sex: Female

DRUGS (5)
  1. AMPYRA (DALFAMPRIDINE) TABLET, 10MG [Suspect]
     Indication: DRUG USE FOR UNKNOWN INDICATION
     Dates: start: 201003
  2. AMPYRA (DALFAMPRIDINE) TABLET, 10MG [Suspect]
     Indication: DRUG USE FOR UNKNOWN INDICATION
     Dates: start: 201004
  3. BETASERON (INTERFERON BETA-1B) [Concomitant]
  4. NEURONTIN (GABAPENTIN) [Concomitant]
  5. VITAMINS [Concomitant]

REACTIONS (6)
  - Cognitive disorder [None]
  - Decreased appetite [None]
  - Activities of daily living impaired [None]
  - Multiple sclerosis relapse [None]
  - Inappropriate schedule of drug administration [None]
  - Asthenia [None]
